FAERS Safety Report 5514428-X (Version None)
Quarter: 2007Q4

REPORT INFORMATION
  Report Type: 
  Country: None (occurrence: None)
  Receive Date: 20071113
  Receipt Date: 20070713
  Transmission Date: 20080405
  Serious: No
  Sender: FDA-Public Use
  Company Number: A0651779A

PATIENT
  Age: 74 Year
  Sex: Male

DRUGS (10)
  1. COREG [Suspect]
     Dosage: 12.5MG TWICE PER DAY
     Route: 048
     Dates: start: 20061201
  2. LASIX [Concomitant]
     Dosage: 40MG PER DAY
  3. COUMADIN [Concomitant]
  4. WELLBUTRIN SR [Concomitant]
     Dosage: 150MG TWICE PER DAY
  5. AMBIEN [Concomitant]
     Dosage: 12.5MG AT NIGHT
  6. PROZAC [Concomitant]
     Dosage: 20MG PER DAY
  7. LISINOPRIL [Concomitant]
     Dosage: 5MG PER DAY
  8. MAGNESIUM OXIDE [Concomitant]
     Dosage: 400MG PER DAY
  9. ANDROGEL [Concomitant]
     Dosage: 4APP PER DAY
     Route: 061
  10. METOLAZONE [Concomitant]
     Dosage: 5MG AS REQUIRED

REACTIONS (1)
  - VISION BLURRED [None]
